FAERS Safety Report 21878597 (Version 1)
Quarter: 2023Q1

REPORT INFORMATION
  Report Type: Spontaneous
  Country: CN (occurrence: CN)
  Receive Date: 20230118
  Receipt Date: 20230118
  Transmission Date: 20230417
  Serious: Yes (Hospitalization)
  Sender: FDA-Public Use
  Company Number: CN-GLAXOSMITHKLINE-CN2023APC005864

PATIENT

DRUGS (2)
  1. VENTOLIN HFA [Suspect]
     Active Substance: ALBUTEROL SULFATE
     Indication: Asthma
     Dosage: 1 PUFF(S), Z (USED AS NEEDED)
     Route: 055
  2. BUDESONIDE [Suspect]
     Active Substance: BUDESONIDE
     Indication: Asthma
     Dosage: UNK UNK, BID, IN THE MORNING AND EVENING

REACTIONS (6)
  - SARS-CoV-2 test positive [Recovered/Resolved]
  - Pyrexia [Not Recovered/Not Resolved]
  - Bacterial infection [Unknown]
  - Neutrophil count increased [Unknown]
  - White blood cell count increased [Unknown]
  - Expired product administered [Unknown]

NARRATIVE: CASE EVENT DATE: 20221228
